FAERS Safety Report 21760652 (Version 1)
Quarter: 2022Q4

REPORT INFORMATION
  Report Type: Spontaneous
  Country: US (occurrence: None)
  Receive Date: 20221220
  Receipt Date: 20221220
  Transmission Date: 20230112
  Serious: Yes (unspecified)
  Sender: FDA-Public Use
  Company Number: None

PATIENT
  Age: 35 Year
  Sex: Female
  Weight: 124.9 kg

DRUGS (4)
  1. OCREVUS [Suspect]
     Active Substance: OCRELIZUMAB
     Indication: Multiple sclerosis
     Dosage: FREQUENCY : ONCE;?
     Route: 041
     Dates: start: 20221216, end: 20221216
  2. Diphenhydramine 25 mg IVP [Concomitant]
     Dates: start: 20221216, end: 20221216
  3. FAMOTIDINE [Concomitant]
     Active Substance: FAMOTIDINE
     Dates: start: 20221216, end: 20221216
  4. METHYLPREDNISOLONE [Concomitant]
     Active Substance: METHYLPREDNISOLONE
     Dates: start: 20221216, end: 20221216

REACTIONS (1)
  - Throat irritation [None]

NARRATIVE: CASE EVENT DATE: 20221216
